FAERS Safety Report 13321438 (Version 1)
Quarter: 2017Q1

REPORT INFORMATION
  Report Type: Spontaneous
  Country: US (occurrence: US)
  Receive Date: 20170310
  Receipt Date: 20170310
  Transmission Date: 20170428
  Serious: No
  Sender: FDA-Public Use
  Company Number: US-ELI_LILLY_AND_COMPANY-US201608001848

PATIENT

DRUGS (3)
  1. CYMBALTA [Suspect]
     Active Substance: DULOXETINE HYDROCHLORIDE
     Indication: PRODUCT USED FOR UNKNOWN INDICATION
     Dosage: UNK, UNKNOWN
     Route: 065
  2. CYMBALTA [Suspect]
     Active Substance: DULOXETINE HYDROCHLORIDE
     Dosage: 40 MG, EACH MORNING
     Route: 065
     Dates: start: 20050815
  3. CYMBALTA [Suspect]
     Active Substance: DULOXETINE HYDROCHLORIDE
     Dosage: 20 MG, EACH MORNING
     Route: 065

REACTIONS (8)
  - Paraesthesia [Unknown]
  - Affect lability [Unknown]
  - Fatigue [Unknown]
  - Irritability [Unknown]
  - Anxiety [Unknown]
  - Agitation [Unknown]
  - Drug withdrawal syndrome [Unknown]
  - Anger [Unknown]
